FAERS Safety Report 8543694-1 (Version None)
Quarter: 2012Q3

REPORT INFORMATION
  Report Type: 
  Country: None (occurrence: None)
  Receive Date: 20120727
  Receipt Date: 20120718
  Transmission Date: 20120928
  Serious: Yes (Hospitalization)
  Sender: FDA-Public Use
  Company Number: US-SANOFI-AVENTIS-2012SA051371

PATIENT
  Sex: Male

DRUGS (2)
  1. PLAQUENIL [Suspect]
     Indication: SARCOIDOSIS
     Route: 048
  2. PREDNISONE [Concomitant]

REACTIONS (1)
  - HOSPITALISATION [None]
